FAERS Safety Report 19139044 (Version 1)
Quarter: 2021Q2

REPORT INFORMATION
  Report Type: Spontaneous
  Country: AT (occurrence: AT)
  Receive Date: 20210415
  Receipt Date: 20210415
  Transmission Date: 20210717
  Serious: Yes (Other)
  Sender: FDA-Public Use
  Company Number: AT-TEVA-2021-AT-1899922

PATIENT
  Age: 46 Year
  Sex: Female

DRUGS (13)
  1. LYRICA [Suspect]
     Active Substance: PREGABALIN
     Dosage: 300MILLIGRAM
     Route: 065
     Dates: start: 20210205, end: 20210208
  2. LYRICA [Suspect]
     Active Substance: PREGABALIN
     Dosage: 25MILLIGRAM
     Route: 065
     Dates: start: 20210119, end: 20210120
  3. MIRTAZAPINE. [Suspect]
     Active Substance: MIRTAZAPINE
     Dosage: 30MILLIGRAM
     Route: 065
     Dates: start: 20210201, end: 202102
  4. LYRICA [Suspect]
     Active Substance: PREGABALIN
     Dosage: 400MILLIGRAM
     Route: 065
     Dates: start: 20210209, end: 20210218
  5. VENLAFAXINE [Concomitant]
     Active Substance: VENLAFAXINE HYDROCHLORIDE
     Dosage: 225MILLIGRAM
     Dates: start: 20210115
  6. VENLAFAXINE [Concomitant]
     Active Substance: VENLAFAXINE HYDROCHLORIDE
     Dosage: 75MILLIGRAM
     Dates: start: 20210107, end: 20210107
  7. VENLAFAXINE [Concomitant]
     Active Substance: VENLAFAXINE HYDROCHLORIDE
     Dosage: 150MILLIGRAM
     Dates: start: 20210108, end: 20210114
  8. SEROQUEL [Suspect]
     Active Substance: QUETIAPINE FUMARATE
     Dosage: 300MILLIGRAM
     Route: 065
     Dates: start: 20210118, end: 202102
  9. LYRICA [Suspect]
     Active Substance: PREGABALIN
     Dosage: 75MILLIGRAM
     Route: 065
     Dates: start: 20210121, end: 20210127
  10. LYRICA [Suspect]
     Active Substance: PREGABALIN
     Dosage: 600MILLIGRAM
     Route: 065
     Dates: start: 20210219
  11. MIRTAZAPINE. [Suspect]
     Active Substance: MIRTAZAPINE
     Dosage: 45MILLLIGRAM
     Route: 065
     Dates: start: 202102
  12. LYRICA [Suspect]
     Active Substance: PREGABALIN
     Dosage: 125MILLIGRAM
     Route: 065
     Dates: start: 20210128, end: 20210130
  13. LYRICA [Suspect]
     Active Substance: PREGABALIN
     Dosage: 200MILLIGRAM
     Route: 065
     Dates: start: 20210131, end: 20210204

REACTIONS (2)
  - Panic attack [Recovered/Resolved]
  - Dissociation [Recovered/Resolved]

NARRATIVE: CASE EVENT DATE: 20200223
